FAERS Safety Report 21618380 (Version 1)
Quarter: 2022Q4

REPORT INFORMATION
  Report Type: Report from Study
  Country: US (occurrence: US)
  Receive Date: 20221119
  Receipt Date: 20221119
  Transmission Date: 20230112
  Serious: No
  Sender: FDA-Public Use
  Company Number: US-ABBVIE-4193452

PATIENT
  Sex: Female

DRUGS (1)
  1. HUMIRA [Suspect]
     Active Substance: ADALIMUMAB
     Indication: Hidradenitis
     Dosage: LAST ADMIN DATE 2022
     Route: 058
     Dates: start: 20221026

REACTIONS (3)
  - Musculoskeletal discomfort [Unknown]
  - Swelling [Unknown]
  - Adverse drug reaction [Unknown]
